FAERS Safety Report 15368371 (Version 1)
Quarter: 2018Q3

REPORT INFORMATION
  Report Type: Spontaneous
  Country: JP (occurrence: JP)
  Receive Date: 20180910
  Receipt Date: 20180910
  Transmission Date: 20181010
  Serious: Yes (Other)
  Sender: FDA-Public Use
  Company Number: JP-ALLERGAN-1843325US

PATIENT
  Age: 16 Year
  Sex: Male

DRUGS (1)
  1. MESALAZINE UNK [Suspect]
     Active Substance: MESALAMINE
     Indication: CROHN^S DISEASE
     Dosage: 3 G, QD
     Route: 048

REACTIONS (5)
  - Cough [Recovering/Resolving]
  - Musculoskeletal pain [Recovering/Resolving]
  - Pyrexia [Recovering/Resolving]
  - Pleuropericarditis [Recovering/Resolving]
  - Off label use [Unknown]
